FAERS Safety Report 4772444-X (Version None)
Quarter: 2005Q3

REPORT INFORMATION
  Report Type: 
  Country: None (occurrence: None)
  Receive Date: 20050914
  Receipt Date: 20050902
  Transmission Date: 20060218
  Serious: Yes (Hospitalization)
  Sender: FDA-Public Use
  Company Number: TCI2005A02727

PATIENT
  Age: 76 Year
  Sex: Male

DRUGS (5)
  1. LEUPROLIDE ACETATE [Suspect]
     Indication: PROSTATE CANCER
     Dosage: 3.75 MG (3.75 MG, 1 IN 28 D)  SUBCUTANEOUS
     Route: 058
     Dates: start: 20050215, end: 20050411
  2. HALCION (TRIAZOLAM) (TABLETS) [Concomitant]
  3. WARFARIN (WARFARIN POTASSIUM) (TABLETS) [Concomitant]
  4. MAGMITT (MAGNESIUM OXIDE) (TABLETS) [Concomitant]
  5. POSTERISAN [Concomitant]

REACTIONS (17)
  - ALANINE AMINOTRANSFERASE INCREASED [None]
  - ASPARTATE AMINOTRANSFERASE INCREASED [None]
  - BEDRIDDEN [None]
  - BLOOD BILIRUBIN INCREASED [None]
  - BLOOD LACTATE DEHYDROGENASE INCREASED [None]
  - BLOOD UREA INCREASED [None]
  - C-REACTIVE PROTEIN INCREASED [None]
  - CENTRAL VENOUS PRESSURE DECREASED [None]
  - DEHYDRATION [None]
  - DYSPHAGIA [None]
  - GENERAL PHYSICAL HEALTH DETERIORATION [None]
  - HYPOPITUITARISM [None]
  - PLEURAL FIBROSIS [None]
  - SUPRAVENTRICULAR EXTRASYSTOLES [None]
  - THIRST [None]
  - URINE OUTPUT INCREASED [None]
  - VENTRICULAR EXTRASYSTOLES [None]
